FAERS Safety Report 6501963-0 (Version None)
Quarter: 2009Q4

REPORT INFORMATION
  Report Type: 
  Country: None (occurrence: None)
  Receive Date: 20091216
  Receipt Date: 20091202
  Transmission Date: 20100525
  Serious: Yes (Life-Threatening)
  Sender: FDA-Public Use
  Company Number: DE-MYLANLABS-2009S1020827

PATIENT
  Age: 70 Year
  Sex: Female
  Weight: 77 kg

DRUGS (1)
  1. ALLOPURINOL [Suspect]
     Indication: HYPERURICAEMIA
     Route: 048
     Dates: start: 20090901

REACTIONS (5)
  - DYSHIDROSIS [None]
  - MUCOSAL INFLAMMATION [None]
  - PHARYNGITIS [None]
  - PROCTITIS [None]
  - RASH GENERALISED [None]
